FAERS Safety Report 5216052-5 (Version None)
Quarter: 2006Q4

REPORT INFORMATION
  Report Type: 
  Country: None (occurrence: None)
  Receive Date: 20061122
  Receipt Date: 20060725
  Transmission Date: 20070319
  Serious: Yes (Other)
  Sender: FDA-Public Use
  Company Number: 2006022350

PATIENT
  Age: 67 Year
  Sex: Female
  Weight: 77.1115 kg

DRUGS (9)
  1. LIPITOR [Suspect]
     Dosage: 40 MG (40 MG, 1 IN 1 D)
     Dates: start: 20040801, end: 20060211
  2. SYNTHROID [Concomitant]
  3. MULTIVITAMIN [Concomitant]
  4. FISH OIL (FISH OIL) [Concomitant]
  5. ALL OTHER THERAPEUTIC PRODUCTS (ALL OTHER THERAPEUTIC PRODUCTS) [Concomitant]
  6. VITAMIN D [Concomitant]
  7. VITAMIN E [Concomitant]
  8. MAGNESIUM (MAGNESIUM) [Concomitant]
  9. CALCIUM (CALCIUM) [Concomitant]

REACTIONS (5)
  - CALCINOSIS [None]
  - DRUG CLEARANCE DECREASED [None]
  - NEPHROLITHIASIS [None]
  - OSTEOPOROSIS [None]
  - VITAMIN D DECREASED [None]
